FAERS Safety Report 4981838-9 (Version None)
Quarter: 2006Q2

REPORT INFORMATION
  Report Type: 
  Country: None (occurrence: None)
  Receive Date: 20060421
  Receipt Date: 20060421
  Transmission Date: 20061013
  Serious: No
  Sender: FDA-Public Use
  Company Number: None

PATIENT
  Sex: Male

DRUGS (1)
  1. NIFEDIPINE [Suspect]
     Dosage: 60 MG 1 Q DAY PO
     Route: 048
     Dates: start: 20060413

REACTIONS (2)
  - HEADACHE [None]
  - PHOTOPHOBIA [None]
